FAERS Safety Report 7886548-6 (Version None)
Quarter: 2011Q4

REPORT INFORMATION
  Report Type: 
  Country: None (occurrence: None)
  Receive Date: 20111102
  Receipt Date: 20111021
  Transmission Date: 20120403
  Serious: Yes (Other)
  Sender: FDA-Public Use
  Company Number: JP-ELI_LILLY_AND_COMPANY-JP201108009093

PATIENT
  Sex: Male

DRUGS (2)
  1. AQUPLA [Concomitant]
  2. GEMZAR [Suspect]
     Indication: BLADDER CANCER
     Dosage: UNK
     Route: 042

REACTIONS (1)
  - RETINAL HAEMORRHAGE [None]
